FAERS Safety Report 25379009 (Version 1)
Quarter: 2025Q2

REPORT INFORMATION
  Report Type: Report from Study
  Country: PH (occurrence: PH)
  Receive Date: 20250530
  Receipt Date: 20250530
  Transmission Date: 20250717
  Serious: Yes (Death)
  Sender: OTSUKA
  Company Number: PH-OTSUKA-2024_031241

PATIENT
  Sex: Female

DRUGS (1)
  1. TOLVAPTAN [Suspect]
     Active Substance: TOLVAPTAN
     Indication: Cardiac failure congestive
     Dosage: 0.5 DF, QD (15 MG HALF TABLET ONCE A DAY)
     Route: 048
     Dates: end: 20250201

REACTIONS (3)
  - Cardiac arrest [Fatal]
  - Underdose [Unknown]
  - Wrong technique in product usage process [Unknown]

NARRATIVE: CASE EVENT DATE: 20250201
